FAERS Safety Report 8172311-8 (Version None)
Quarter: 2012Q1

REPORT INFORMATION
  Report Type: 
  Country: None (occurrence: None)
  Receive Date: 20120229
  Receipt Date: 20120221
  Transmission Date: 20120608
  Serious: No
  Sender: FDA-Public Use
  Company Number: US-BIOGENIDEC-2012BI006542

PATIENT
  Sex: Female

DRUGS (1)
  1. TYSABRI [Suspect]
     Indication: MULTIPLE SCLEROSIS
     Route: 042
     Dates: start: 20110120, end: 20111117

REACTIONS (5)
  - PAIN [None]
  - BAND SENSATION [None]
  - DRUG INEFFECTIVE [None]
  - SURGERY [None]
  - MULTIPLE SCLEROSIS RELAPSE [None]
